FAERS Safety Report 9078170 (Version 1)
Quarter: 2013Q1

REPORT INFORMATION
  Report Type: Spontaneous
  Country: PR (occurrence: PR)
  Receive Date: 20130130
  Receipt Date: 20130130
  Transmission Date: 20140127
  Serious: No
  Sender: FDA-Public Use
  Company Number: PR-ABBOTT-12P-131-0953172-00

PATIENT
  Age: 54 None
  Sex: Female
  Weight: 87.17 kg

DRUGS (3)
  1. HUMIRA 40 MG/0.8 ML PEN [Suspect]
     Indication: PSORIASIS
     Route: 058
  2. METFORMIN ER [Concomitant]
     Indication: DIABETES MELLITUS
     Route: 048
  3. GLIPIZIDE [Concomitant]
     Indication: DIABETES MELLITUS
     Route: 048
     Dates: start: 20120629

REACTIONS (2)
  - Sinusitis [Recovered/Resolved]
  - Urinary tract infection [Not Recovered/Not Resolved]
